FAERS Safety Report 25007792 (Version 2)
Quarter: 2025Q1

REPORT INFORMATION
  Report Type: Report from Study
  Country: US (occurrence: US)
  Receive Date: 20250225
  Receipt Date: 20250321
  Transmission Date: 20250408
  Serious: Yes (Hospitalization, Other)
  Sender: TAKEDA
  Company Number: US-TAKEDA-2024TUS003318

PATIENT
  Age: 11 Year
  Sex: Female

DRUGS (17)
  1. TEDUGLUTIDE [Suspect]
     Active Substance: TEDUGLUTIDE
     Indication: Short-bowel syndrome
     Dosage: 5 MILLIGRAM, QD
     Dates: start: 2019, end: 20240320
  2. TEDUGLUTIDE [Suspect]
     Active Substance: TEDUGLUTIDE
     Dosage: 1.8 MILLIGRAM, QD
     Dates: start: 20240320
  3. TEDUGLUTIDE [Suspect]
     Active Substance: TEDUGLUTIDE
  4. TEDUGLUTIDE [Suspect]
     Active Substance: TEDUGLUTIDE
  5. ERYTHROMYCIN [Concomitant]
     Active Substance: ERYTHROMYCIN
     Indication: Impaired gastric emptying
     Dosage: 250 MILLIGRAM, Q6HR
  6. ERYTHROMYCIN [Concomitant]
     Active Substance: ERYTHROMYCIN
     Dosage: 250 MILLIGRAM, Q6HR
     Dates: start: 20231223
  7. CHOLECALCIFEROL [Concomitant]
     Active Substance: CHOLECALCIFEROL
     Indication: Parenteral nutrition
     Dosage: 125 MICROGRAM, BID
     Dates: start: 20220411
  8. ALCOHOL [Concomitant]
     Active Substance: ALCOHOL
     Indication: Device related infection
     Dosage: 0.78 MILLILITER, QD
     Dates: start: 20220711
  9. IBUPROFEN [Concomitant]
     Active Substance: IBUPROFEN
     Indication: Pain management
     Dosage: 15 MILLILITER, Q6HR
     Dates: start: 20220805
  10. ACETAMINOPHEN [Concomitant]
     Active Substance: ACETAMINOPHEN
     Indication: Pain management
     Dosage: 8.5 MILLILITER, Q4HR
     Dates: start: 20220804
  11. MELATONIN [Concomitant]
     Active Substance: MELATONIN
     Indication: Sleep disorder
     Dosage: UNK UNK, QD
     Dates: start: 20220805
  12. METRONIDAZOLE [Concomitant]
     Active Substance: METRONIDAZOLE
     Indication: Gastrointestinal microorganism overgrowth
     Dosage: 2.2 MILLILITER, BID
     Dates: start: 20221012
  13. CALCIUM CARBONATE [Concomitant]
     Active Substance: CALCIUM CARBONATE
     Indication: Parenteral nutrition
     Dosage: 5 MILLILITER, TID
     Dates: start: 20220712
  14. FAMOTIDINE [Concomitant]
     Active Substance: FAMOTIDINE
     Indication: Parenteral nutrition
     Dosage: 2 MILLILITER, BID
     Dates: start: 20220428
  15. FERROUS SULFATE [Concomitant]
     Active Substance: FERROUS SULFATE
     Indication: Short-bowel syndrome
     Dosage: 4 MILLILITER, BID
     Dates: start: 20220824
  16. CHOLESTYRAMINE [Concomitant]
     Active Substance: CHOLESTYRAMINE
     Indication: Short-bowel syndrome
     Dosage: 1.5 GRAM, TID
     Dates: start: 20220824
  17. LOPERAMIDE [Concomitant]
     Active Substance: LOPERAMIDE
     Indication: Parenteral nutrition
     Dosage: UNK UNK, BID
     Dates: start: 20220829

REACTIONS (2)
  - Gastroenteritis adenovirus [Recovered/Resolved]
  - Hyperlipasaemia [Recovered/Resolved]

NARRATIVE: CASE EVENT DATE: 20231220
